FAERS Safety Report 15466906 (Version 1)
Quarter: 2018Q4

REPORT INFORMATION
  Report Type: Spontaneous
  Country: FR (occurrence: FR)
  Receive Date: 20181005
  Receipt Date: 20181005
  Transmission Date: 20190204
  Serious: No
  Sender: FDA-Public Use
  Company Number: FR-IPSEN BIOPHARMACEUTICALS, INC.-2018-13674

PATIENT
  Sex: Female

DRUGS (1)
  1. DECAPEPTYL LP 3 MG [Suspect]
     Active Substance: TRIPTORELIN
     Indication: PRODUCT USED FOR UNKNOWN INDICATION
     Dosage: 3 MG
     Route: 030

REACTIONS (7)
  - Vulvovaginal discomfort [Unknown]
  - Breast swelling [Not Recovered/Not Resolved]
  - Nausea [Recovered/Resolved]
  - Abdominal distension [Not Recovered/Not Resolved]
  - Vulvovaginal dryness [Unknown]
  - Vaginal odour [Unknown]
  - Fatigue [Recovered/Resolved]
